FAERS Safety Report 9097994 (Version 2)
Quarter: 2013Q2

REPORT INFORMATION
  Report Type: Spontaneous
  Country: CA (occurrence: CA)
  Receive Date: 20130212
  Receipt Date: 20130426
  Transmission Date: 20140414
  Serious: Yes (Other)
  Sender: FDA-Public Use
  Company Number: CA-SANOFI-AVENTIS-2013SA009559

PATIENT
  Age: 31 Year
  Sex: Female

DRUGS (3)
  1. LANTUS [Suspect]
     Indication: TYPE 1 DIABETES MELLITUS
     Dosage: DOSE:19 UNIT(S)
     Route: 058
     Dates: start: 20120921
  2. APIDRA [Suspect]
     Indication: TYPE 1 DIABETES MELLITUS
     Dosage: DOSAGE: 1 UNIT PER 12 GRAMS OF CARBS (3-4 UNITS PER MEAL)
     Route: 065
     Dates: start: 20121004
  3. METFORMIN [Suspect]
     Indication: TYPE 1 DIABETES MELLITUS
     Route: 065
     Dates: start: 20120924, end: 20121116

REACTIONS (3)
  - Nausea [Recovered/Resolved]
  - Abdominal pain upper [Recovered/Resolved]
  - Weight decreased [Recovered/Resolved]
